FAERS Safety Report 24059060 (Version 1)
Quarter: 2024Q3

REPORT INFORMATION
  Report Type: Spontaneous
  Country: CA (occurrence: CA)
  Receive Date: 20240708
  Receipt Date: 20240708
  Transmission Date: 20241016
  Serious: Yes (Other)
  Sender: ROCHE
  Company Number: CA-002147023-NVSC2024CA132976

PATIENT
  Age: 57 Year
  Sex: Female

DRUGS (58)
  1. CLONAZEPAM [Suspect]
     Active Substance: CLONAZEPAM
     Indication: Sleep disorder
     Dosage: UNK
     Route: 050
  2. CLONAZEPAM [Suspect]
     Active Substance: CLONAZEPAM
     Dosage: UNK
     Route: 050
  3. CLONAZEPAM [Suspect]
     Active Substance: CLONAZEPAM
     Dosage: 1 DOSAGE FORM, QD
     Route: 050
  4. CLONAZEPAM [Suspect]
     Active Substance: CLONAZEPAM
     Dosage: 1 DOSAGE FORM, QD
     Route: 050
  5. OMALIZUMAB [Suspect]
     Active Substance: OMALIZUMAB
     Indication: Asthma
     Dosage: 1 DOSAGE FORM, BID
     Route: 050
  6. OMALIZUMAB [Suspect]
     Active Substance: OMALIZUMAB
     Dosage: 2 DOSAGE FORM, BID
     Route: 050
  7. OMALIZUMAB [Suspect]
     Active Substance: OMALIZUMAB
     Dosage: 1 DOSAGE FORM, BID
     Route: 050
  8. OMALIZUMAB [Suspect]
     Active Substance: OMALIZUMAB
     Dosage: 1 DOSAGE FORM, BID
     Route: 050
  9. OMALIZUMAB [Suspect]
     Active Substance: OMALIZUMAB
     Dosage: 2 DOSAGE FORM, QD
     Route: 050
  10. OMALIZUMAB [Suspect]
     Active Substance: OMALIZUMAB
     Dosage: 2 DOSAGE FORM, QD
     Route: 050
  11. OMALIZUMAB [Suspect]
     Active Substance: OMALIZUMAB
     Dosage: 1 DOSAGE FORM, BID
     Route: 050
  12. OMALIZUMAB [Suspect]
     Active Substance: OMALIZUMAB
     Dosage: 2 DOSAGE FORM, QD
     Route: 050
  13. OMALIZUMAB [Suspect]
     Active Substance: OMALIZUMAB
     Dosage: UNK
     Route: 065
  14. OMALIZUMAB [Suspect]
     Active Substance: OMALIZUMAB
     Dosage: 2 DOSAGE FORM, BID
     Route: 050
  15. OMALIZUMAB [Suspect]
     Active Substance: OMALIZUMAB
     Dosage: UNK
     Route: 065
  16. BUPROPION [Suspect]
     Active Substance: BUPROPION
     Indication: Anxiety
     Dosage: UNK
     Route: 050
  17. BUPROPION [Suspect]
     Active Substance: BUPROPION
     Dosage: 2 DOSAGE FORM, QD
     Route: 050
  18. BUPROPION [Suspect]
     Active Substance: BUPROPION
     Dosage: 2 DOSAGE FORM, QD
     Route: 050
  19. BUPROPION [Suspect]
     Active Substance: BUPROPION
     Dosage: UNK
     Route: 050
  20. BUPROPION [Suspect]
     Active Substance: BUPROPION
     Indication: Anxiety
     Dosage: 1 DOSAGE FORM, BID
     Route: 050
  21. CANDESARTAN CILEXETIL [Suspect]
     Active Substance: CANDESARTAN CILEXETIL
     Indication: Hypertension
     Dosage: 24 MG, QD
     Route: 050
  22. CANDESARTAN CILEXETIL [Suspect]
     Active Substance: CANDESARTAN CILEXETIL
     Dosage: UNK
     Route: 050
  23. CANDESARTAN CILEXETIL [Suspect]
     Active Substance: CANDESARTAN CILEXETIL
     Dosage: 1 DOSAGE FORM, QD
     Route: 050
  24. CANDESARTAN CILEXETIL [Suspect]
     Active Substance: CANDESARTAN CILEXETIL
     Dosage: 1 DOSAGE FORM, QD
     Route: 050
  25. CANDESARTAN CILEXETIL [Suspect]
     Active Substance: CANDESARTAN CILEXETIL
     Dosage: 1 DOSAGE FORM, QD
     Route: 050
  26. CANDESARTAN CILEXETIL [Suspect]
     Active Substance: CANDESARTAN CILEXETIL
     Dosage: 16 MG, QD
     Route: 050
  27. CANDESARTAN CILEXETIL [Suspect]
     Active Substance: CANDESARTAN CILEXETIL
     Dosage: 16 MG, QD
     Route: 050
  28. CANDESARTAN CILEXETIL [Suspect]
     Active Substance: CANDESARTAN CILEXETIL
     Indication: Hypertension
     Dosage: 1 DOSAGE FORM, QD
     Route: 065
  29. CANDESARTAN CILEXETIL [Suspect]
     Active Substance: CANDESARTAN CILEXETIL
     Dosage: UNK
     Route: 065
  30. ADVAIR HFA [Concomitant]
     Active Substance: FLUTICASONE PROPIONATE\SALMETEROL XINAFOATE
     Indication: Product used for unknown indication
     Dosage: 1 DOSAGE FORM, QD
     Route: 065
  31. ADVAIR HFA [Concomitant]
     Active Substance: FLUTICASONE PROPIONATE\SALMETEROL XINAFOATE
     Dosage: 1 DOSAGE FORM, QD
     Route: 065
  32. NAPROXEN [Concomitant]
     Active Substance: NAPROXEN
     Indication: Product used for unknown indication
     Dosage: UNK
     Route: 065
  33. NASONEX [Concomitant]
     Active Substance: MOMETASONE FUROATE
     Indication: Hypersensitivity
     Dosage: UNK
     Route: 050
  34. NASONEX [Concomitant]
     Active Substance: MOMETASONE FUROATE
     Dosage: UNK
     Route: 050
  35. NASONEX [Concomitant]
     Active Substance: MOMETASONE FUROATE
     Dosage: 4 DOSAGE FORM, QD
     Route: 050
  36. NASONEX [Concomitant]
     Active Substance: MOMETASONE FUROATE
     Dosage: 4 DOSAGE FORM, QD (SPRAY, METERED DOSE)
     Route: 050
  37. PREDNISONE [Concomitant]
     Active Substance: PREDNISONE
     Indication: Asthma
     Dosage: 25 MG, QD
     Route: 065
  38. PREDNISONE [Concomitant]
     Active Substance: PREDNISONE
     Dosage: 30 MG, QD
     Route: 065
  39. PREDNISONE [Concomitant]
     Active Substance: PREDNISONE
     Dosage: 30 MG, QD
     Route: 050
  40. PREDNISONE [Concomitant]
     Active Substance: PREDNISONE
     Dosage: 30 MG, QD
     Route: 065
  41. PREDNISONE [Concomitant]
     Active Substance: PREDNISONE
     Dosage: 5 MG, QD
     Route: 065
  42. PREDNISONE [Concomitant]
     Active Substance: PREDNISONE
     Dosage: 30 MG, QD
     Route: 065
  43. PREDNISONE [Concomitant]
     Active Substance: PREDNISONE
     Dosage: 25 MG, QD
     Route: 065
  44. PREDNISONE [Concomitant]
     Active Substance: PREDNISONE
     Dosage: 5 MG, QD
     Route: 065
  45. SALMETEROL XINAFOATE [Concomitant]
     Active Substance: SALMETEROL XINAFOATE
     Indication: Asthma
     Dosage: UNK
     Route: 065
  46. SALMETEROL XINAFOATE [Concomitant]
     Active Substance: SALMETEROL XINAFOATE
     Dosage: UNK
     Route: 065
  47. SALMETEROL XINAFOATE [Concomitant]
     Active Substance: SALMETEROL XINAFOATE
     Dosage: 2 DOSAGE FORM
     Route: 065
  48. SINGULAIR [Concomitant]
     Active Substance: MONTELUKAST SODIUM
     Indication: Asthma
     Dosage: UNK
     Route: 050
  49. SINGULAIR [Concomitant]
     Active Substance: MONTELUKAST SODIUM
     Dosage: UNK
     Route: 050
  50. SINGULAIR [Concomitant]
     Active Substance: MONTELUKAST SODIUM
     Dosage: 1 DOSAGE FORM, QD
     Route: 050
  51. SINGULAIR [Concomitant]
     Active Substance: MONTELUKAST SODIUM
     Dosage: 1 DOSAGE FORM, QD
     Route: 050
  52. SPIRIVA [Concomitant]
     Active Substance: TIOTROPIUM BROMIDE MONOHYDRATE
     Indication: Asthma
     Dosage: 2 DOSAGE FORM, QD
     Route: 065
  53. SPIRIVA [Concomitant]
     Active Substance: TIOTROPIUM BROMIDE MONOHYDRATE
     Dosage: 2 DOSAGE FORM, QD
     Route: 050
  54. TRAZODONE [Concomitant]
     Active Substance: TRAZODONE HYDROCHLORIDE
     Indication: Asthma
     Dosage: 1 DOSAGE FORM, QD
     Route: 050
  55. TRAZODONE [Concomitant]
     Active Substance: TRAZODONE HYDROCHLORIDE
     Dosage: UNK
     Route: 050
  56. TRAZODONE [Concomitant]
     Active Substance: TRAZODONE HYDROCHLORIDE
     Dosage: UNK
     Route: 050
  57. TRAZODONE [Concomitant]
     Active Substance: TRAZODONE HYDROCHLORIDE
     Indication: Asthma
     Dosage: 1 DOSAGE FORM, QD
     Route: 050
  58. TYLENOL [Concomitant]
     Active Substance: ACETAMINOPHEN
     Indication: Product used for unknown indication
     Route: 065

REACTIONS (7)
  - Breast cancer [Not Recovered/Not Resolved]
  - Dyspnoea [Not Recovered/Not Resolved]
  - Headache [Not Recovered/Not Resolved]
  - Pneumonia [Not Recovered/Not Resolved]
  - Productive cough [Not Recovered/Not Resolved]
  - Sputum discoloured [Not Recovered/Not Resolved]
  - Drug ineffective [Unknown]
